FAERS Safety Report 6090394-6 (Version None)
Quarter: 2009Q1

REPORT INFORMATION
  Report Type: 
  Country: None (occurrence: None)
  Receive Date: 20090224
  Receipt Date: 20081223
  Transmission Date: 20090719
  Serious: No
  Sender: FDA-Public Use
  Company Number: US-ABBOTT-08P-163-0494762-00

PATIENT
  Sex: Male

DRUGS (5)
  1. SIMCOR [Suspect]
     Indication: HIGH DENSITY LIPOPROTEIN DECREASED
     Dates: start: 20081201
  2. SIMCOR [Suspect]
     Indication: LOW DENSITY LIPOPROTEIN INCREASED
  3. ASPIRIN [Concomitant]
     Indication: DRUG USE FOR UNKNOWN INDICATION
  4. UNKNOWN BLOOD PRESSURE PILL [Concomitant]
     Indication: DRUG USE FOR UNKNOWN INDICATION
  5. UNKNOWN PILL FOR ENLARGED PROSTATE [Concomitant]
     Indication: PROSTATOMEGALY

REACTIONS (1)
  - BLOOD GLUCOSE INCREASED [None]
